FAERS Safety Report 16701117 (Version 2)
Quarter: 2019Q3

REPORT INFORMATION
  Report Type: Spontaneous
  Country: FR (occurrence: FR)
  Receive Date: 20190814
  Receipt Date: 20190819
  Transmission Date: 20191004
  Serious: Yes (Other)
  Sender: FDA-Public Use
  Company Number: FR-SA-2019SA221741

PATIENT
  Age: 15 Year
  Sex: Female

DRUGS (1)
  1. XYZAL [Suspect]
     Active Substance: LEVOCETIRIZINE DIHYDROCHLORIDE
     Indication: SUICIDE ATTEMPT
     Dosage: 7 DF (0.67 MG/KG: 5 MG)
     Route: 048

REACTIONS (6)
  - Delirium [Unknown]
  - Suicide attempt [Unknown]
  - Toxicity to various agents [Unknown]
  - Blindness [Unknown]
  - Hallucination [Unknown]
  - Intentional overdose [Unknown]
